FAERS Safety Report 25063784 (Version 1)
Quarter: 2025Q1

REPORT INFORMATION
  Report Type: Spontaneous
  Country: US (occurrence: None)
  Receive Date: 20250311
  Receipt Date: 20250311
  Transmission Date: 20250409
  Serious: Yes (Death)
  Sender: FDA-CTU
  Company Number: None

PATIENT
  Age: 83 Year
  Sex: Male

DRUGS (1)
  1. ARANESP [Suspect]
     Active Substance: DARBEPOETIN ALFA
     Indication: Anaemia
     Dosage: OTHER FREQUENCY : EVERY TWO WEEKS;?
     Route: 030
     Dates: start: 20250213, end: 20250227

REACTIONS (3)
  - Wrong technique in product usage process [None]
  - Pulmonary oedema [None]
  - Cardiac arrest [None]

NARRATIVE: CASE EVENT DATE: 20250213
